FAERS Safety Report 16414766 (Version 1)
Quarter: 2019Q2

REPORT INFORMATION
  Report Type: Spontaneous
  Country: US (occurrence: US)
  Receive Date: 20190503
  Receipt Date: 20190503
  Transmission Date: 20190711
  Serious: Yes (Hospitalization)
  Sender: FDA-Public Use
  Company Number: None

PATIENT
  Age: 46 Year
  Sex: Male

DRUGS (1)
  1. CAPECITABINE TAB 500MG [Suspect]
     Active Substance: CAPECITABINE
     Dates: start: 201902

REACTIONS (5)
  - Dehydration [None]
  - Asthenia [None]
  - Skin discolouration [None]
  - Hypoaesthesia [None]
  - Confusional state [None]

NARRATIVE: CASE EVENT DATE: 20190328
